FAERS Safety Report 8192147-1 (Version None)
Quarter: 2012Q1

REPORT INFORMATION
  Report Type: 
  Country: None (occurrence: None)
  Receive Date: 20120307
  Receipt Date: 20120227
  Transmission Date: 20120608
  Serious: Yes (Hospitalization, Other)
  Sender: FDA-Public Use
  Company Number: US-ASTRAZENECA-2011SE77363

PATIENT
  Age: 66 Year
  Sex: Female

DRUGS (3)
  1. SYMBICORT [Suspect]
     Dosage: 160/4.5 MCG TWO TIMES A DAY
     Route: 055
  2. SYMBICORT [Suspect]
     Dosage: 160/4.5 MCG 1 PUFF PER DAY
     Route: 055
  3. SPIRIVA [Concomitant]

REACTIONS (2)
  - CHEST PAIN [None]
  - INCORRECT DOSE ADMINISTERED [None]
